FAERS Safety Report 13097862 (Version 2)
Quarter: 2017Q1

REPORT INFORMATION
  Report Type: Spontaneous
  Country: NL (occurrence: NL)
  Receive Date: 20170109
  Receipt Date: 20170118
  Transmission Date: 20170428
  Serious: Yes (Disabling, Other)
  Sender: FDA-Public Use
  Company Number: NL-GLAXOSMITHKLINE-NL2017GSK000354

PATIENT
  Sex: Female
  Weight: 82 kg

DRUGS (9)
  1. METOPROLOL. [Concomitant]
     Active Substance: METOPROLOL
     Dosage: 50 MG, QD
  2. CALCICHEW [Concomitant]
     Active Substance: CALCIUM CARBONATE
     Dosage: 1 DF, QD
  3. VALPROATE [Concomitant]
     Active Substance: VALPROIC ACID
  4. COAPROVEL [Concomitant]
     Active Substance: HYDROCHLOROTHIAZIDE\IRBESARTAN
     Dosage: 1 DF, QD
  5. OMEPRAZOL [Concomitant]
     Active Substance: OMEPRAZOLE
     Dosage: 20 MG, QD
  6. IMIGRAN [Suspect]
     Active Substance: SUMATRIPTAN SUCCINATE
     Indication: MIGRAINE
     Dosage: UNK
     Route: 058
     Dates: start: 2009, end: 2011
  7. TOPIRAMATE. [Concomitant]
     Active Substance: TOPIRAMATE
  8. IMIGRAN NASAL SPRAY [Suspect]
     Active Substance: SUMATRIPTAN
     Indication: MIGRAINE
     Dosage: 10 MG, UNK
     Dates: start: 2002
  9. DICLOFENAC [Concomitant]
     Active Substance: DICLOFENAC
     Dosage: 50 MG, UNK

REACTIONS (1)
  - Polyneuropathy chronic [Not Recovered/Not Resolved]

NARRATIVE: CASE EVENT DATE: 2015
